FAERS Safety Report 9327848 (Version 2)
Quarter: 2013Q3

REPORT INFORMATION
  Report Type: Spontaneous
  Country: US (occurrence: US)
  Receive Date: 20130604
  Receipt Date: 20130708
  Transmission Date: 20140515
  Serious: No
  Sender: FDA-Public Use
  Company Number: US-AMGEN-USASP2013036194

PATIENT
  Age: 54 Year
  Sex: Female

DRUGS (4)
  1. ENBREL [Suspect]
     Indication: RHEUMATOID ARTHRITIS
     Dosage: 50 MG, QWK
     Route: 058
     Dates: start: 20130304, end: 20130618
  2. METHOTREXATE [Concomitant]
     Dosage: 2.5 MG, UNK
  3. NAPROSYN                           /00256201/ [Concomitant]
     Dosage: 500 MG, UNK
  4. FOLIC ACID [Concomitant]
     Dosage: UNK

REACTIONS (5)
  - Adverse reaction [Unknown]
  - Injection site urticaria [Not Recovered/Not Resolved]
  - Injection site erythema [Not Recovered/Not Resolved]
  - Injection site pruritus [Not Recovered/Not Resolved]
  - Injection site warmth [Not Recovered/Not Resolved]
